FAERS Safety Report 19990479 (Version 1)
Quarter: 2021Q4

REPORT INFORMATION
  Report Type: Spontaneous
  Country: US (occurrence: US)
  Receive Date: 20211025
  Receipt Date: 20211025
  Transmission Date: 20220304
  Serious: No
  Sender: FDA-Public Use
  Company Number: US-BAYER-2021A234044

PATIENT

DRUGS (1)
  1. MIRALAX [Suspect]
     Active Substance: POLYETHYLENE GLYCOL 3350
     Dosage: SINCE 4-5 DAYS
     Route: 048
     Dates: start: 202110

REACTIONS (1)
  - Frequent bowel movements [Unknown]

NARRATIVE: CASE EVENT DATE: 20211001
